FAERS Safety Report 17854760 (Version 1)
Quarter: 2020Q2

REPORT INFORMATION
  Report Type: Spontaneous
  Country: GB (occurrence: GB)
  Receive Date: 20200603
  Receipt Date: 20200603
  Transmission Date: 20200714
  Serious: Yes (Life-Threatening, Other)
  Sender: FDA-Public Use
  Company Number: GB-PFIZER INC-2020215861

PATIENT
  Age: 85 Year
  Sex: Male
  Weight: 66.8 kg

DRUGS (5)
  1. ATORVASTATIN [Suspect]
     Active Substance: ATORVASTATIN
     Dosage: 80 MG
     Route: 048
     Dates: start: 20180309
  2. ACETYLSALICYLIC ACID [Concomitant]
     Active Substance: ASPIRIN
     Indication: ANTIPLATELET THERAPY
     Dosage: 75 MG, 1X/DAY (WITH BREAKFAST)
     Dates: start: 20200304
  3. BISOPROLOL [Concomitant]
     Active Substance: BISOPROLOL
     Dosage: 2.5 MG, 1X/DAY
     Dates: start: 20200304
  4. ATORVASTATIN [Suspect]
     Active Substance: ATORVASTATIN
     Dosage: 10 MG
     Route: 048
     Dates: end: 20200424
  5. ISOSORBIDE MONONITRATE. [Concomitant]
     Active Substance: ISOSORBIDE MONONITRATE
     Dosage: 20 MG, 1X/DAY (AT 8AM AND 2PM)
     Dates: start: 20200304

REACTIONS (4)
  - Rhabdomyolysis [Recovered/Resolved]
  - Urosepsis [Unknown]
  - Acute kidney injury [Recovered/Resolved]
  - Fall [Unknown]

NARRATIVE: CASE EVENT DATE: 20190108
